FAERS Safety Report 21164065 (Version 1)
Quarter: 2022Q3

REPORT INFORMATION
  Report Type: Report from Study
  Country: US (occurrence: US)
  Receive Date: 20220803
  Receipt Date: 20220803
  Transmission Date: 20221027
  Serious: Yes (Death, Other)
  Sender: FDA-Public Use
  Company Number: US-ABBVIE-22K-163-4491227-00

PATIENT
  Sex: Male
  Weight: 72.640 kg

DRUGS (1)
  1. CREON [Suspect]
     Active Substance: PANCRELIPASE AMYLASE\PANCRELIPASE LIPASE\PANCRELIPASE PROTEASE
     Indication: Dyspepsia
     Dosage: 48000 EVERY MEAL THEN 24000 EVERY SNACK
     Route: 048

REACTIONS (2)
  - Sepsis [Fatal]
  - Pancreatic cyst [Unknown]

NARRATIVE: CASE EVENT DATE: 20210101
